FAERS Safety Report 6993558-X (Version None)
Quarter: 2010Q3

REPORT INFORMATION
  Report Type: 
  Country: None (occurrence: None)
  Receive Date: 20100917
  Receipt Date: 20100701
  Transmission Date: 20110219
  Serious: No
  Sender: FDA-Public Use
  Company Number: US-ASTRAZENECA-2007UW21532

PATIENT
  Age: 11509 Day
  Sex: Female
  Weight: 95.3 kg

DRUGS (3)
  1. SEROQUEL [Suspect]
     Indication: ANXIETY
     Dosage: 200, 300, 700 MG
     Route: 048
     Dates: start: 20050301
  2. SEROQUEL [Suspect]
     Indication: DEPRESSION
     Dosage: 200, 300, 700 MG
     Route: 048
     Dates: start: 20050301
  3. SEROQUEL [Suspect]
     Indication: BIPOLAR DISORDER
     Dosage: 200, 300, 700 MG
     Route: 048
     Dates: start: 20050301

REACTIONS (4)
  - BACK INJURY [None]
  - OBESITY [None]
  - SPINAL CORD DISORDER [None]
  - TYPE 2 DIABETES MELLITUS [None]
